FAERS Safety Report 8762492 (Version 1)
Quarter: 2012Q4

REPORT INFORMATION
  Report Type: 
  Country: US (occurrence: US)
  Receive Date: 20120829
  Receipt Date: 20120829
  Transmission Date: 20130627
  Serious: No
  Sender: FDA-Public Use
  Company Number: US-PFIZER INC-2012208491

PATIENT
  Age: 70 Year
  Sex: Male

DRUGS (2)
  1. LYRICA [Suspect]
     Indication: POST HERPETIC NEURALGIA
     Dosage: 75 mg, 3x/day
  2. LYRICA [Suspect]
     Dosage: 75 mg, 2x/day

REACTIONS (3)
  - Nausea [Unknown]
  - Chills [Unknown]
  - Hyperhidrosis [Unknown]
